FAERS Safety Report 4868038-8 (Version None)
Quarter: 2005Q4

REPORT INFORMATION
  Report Type: 
  Country: None (occurrence: None)
  Receive Date: 20051229
  Receipt Date: 20051220
  Transmission Date: 20060501
  Serious: Yes (Death)
  Sender: FDA-Public Use
  Company Number: FR-AVENTIS-200514249FR

PATIENT
  Age: 68 Year
  Sex: Male
  Weight: 68 kg

DRUGS (10)
  1. CELECTOL [Suspect]
     Indication: ESSENTIAL HYPERTENSION
     Route: 048
     Dates: end: 20051115
  2. LASILIX [Suspect]
     Indication: RENAL FAILURE CHRONIC
     Route: 048
     Dates: end: 20051115
  3. UN-ALFA [Suspect]
     Route: 048
     Dates: end: 20051115
  4. NEORECORMON [Suspect]
     Route: 058
     Dates: end: 20051115
  5. HEXAQUINE [Suspect]
     Route: 048
     Dates: end: 20051115
  6. LESCOL [Suspect]
     Route: 048
     Dates: end: 20051115
  7. TARDYFERON [Suspect]
     Route: 048
  8. VALIUM [Suspect]
     Route: 048
  9. CALCIDIA [Suspect]
     Route: 048
  10. EUROBIOL [Suspect]
     Route: 048

REACTIONS (4)
  - DEATH [None]
  - ENCEPHALOPATHY [None]
  - HEADACHE [None]
  - HYPERTENSION [None]
